FAERS Safety Report 24170628 (Version 1)
Quarter: 2024Q3

REPORT INFORMATION
  Report Type: Spontaneous
  Country: US (occurrence: None)
  Receive Date: 20240802
  Receipt Date: 20240802
  Transmission Date: 20241017
  Serious: Yes (Hospitalization)
  Sender: Public
  Company Number: None

PATIENT
  Sex: Female

DRUGS (10)
  1. KISQALI FEMARA CO-PACK [Suspect]
     Active Substance: LETROZOLE\RIBOCICLIB
     Indication: Breast cancer female
     Dosage: FREQ: TAKE 3 KISQALI TABLETS BY MOUTH DAILY FOR 21 DAYS, THEN OFF FOR 7 DAYS, TAKE 1 FEMARA TABLET
     Route: 048
     Dates: start: 20221231
  2. ALPRAZOLAM [Concomitant]
     Active Substance: ALPRAZOLAM
  3. ASPIRIN LOW TAB [Concomitant]
  4. ATORVASTATIN [Concomitant]
     Active Substance: ATORVASTATIN
  5. BISOPROLOL FUMARATE [Concomitant]
     Active Substance: BISOPROLOL FUMARATE
  6. CALCIUM\CHOLECALCIFEROL [Concomitant]
     Active Substance: CALCIUM\CHOLECALCIFEROL
  7. CYMBALTA [Concomitant]
     Active Substance: DULOXETINE HYDROCHLORIDE
  8. DEXAMETHASONE [Concomitant]
     Active Substance: DEXAMETHASONE
  9. DILTIAZEM [Concomitant]
     Active Substance: DILTIAZEM
  10. DULOXETINE [Concomitant]
     Active Substance: DULOXETINE

REACTIONS (3)
  - Alopecia [None]
  - Onychoclasis [None]
  - Therapy interrupted [None]
